FAERS Safety Report 26147585 (Version 1)
Quarter: 2025Q4

REPORT INFORMATION
  Report Type: Report from Study
  Country: US (occurrence: US)
  Receive Date: 20251211
  Receipt Date: 20251211
  Transmission Date: 20260118
  Serious: Yes (Hospitalization)
  Sender: JOHNSON AND JOHNSON
  Company Number: US-JNJFOC-20251208727

PATIENT
  Age: 52 Year
  Sex: Male

DRUGS (3)
  1. SPRAVATO [Suspect]
     Active Substance: ESKETAMINE
     Indication: Depression
     Dosage: ^84 MG, 28 TOTAL DOSES^
     Route: 045
     Dates: start: 20240325, end: 20251120
  2. SPRAVATO [Suspect]
     Active Substance: ESKETAMINE
     Dosage: ^28 MG, 1 TOTAL DOSE^, RECENT DOSE
     Route: 045
     Dates: start: 20251204, end: 20251204
  3. SPRAVATO [Suspect]
     Active Substance: ESKETAMINE
     Dosage: ^56 MG, 1 TOTAL DOSE^, ALSO CONFLICTINGLY REPORTED AS 84 MG
     Route: 045
     Dates: start: 20240318, end: 20240318

REACTIONS (3)
  - Chest pain [Not Recovered/Not Resolved]
  - Physical examination abnormal [Unknown]
  - Oxygen saturation abnormal [Unknown]

NARRATIVE: CASE EVENT DATE: 20251204
